FAERS Safety Report 5677519-9 (Version None)
Quarter: 2008Q1

REPORT INFORMATION
  Report Type: 
  Country: None (occurrence: None)
  Receive Date: 20080324
  Receipt Date: 20080316
  Transmission Date: 20080703
  Serious: Yes (Hospitalization, Other)
  Sender: FDA-Public Use
  Company Number: CA-ELI_LILLY_AND_COMPANY-CA200803004205

PATIENT
  Age: 49 Year
  Sex: Female

DRUGS (6)
  1. FORTEO [Suspect]
     Indication: OSTEOPOROSIS
     Dosage: 20 UG, DAILY (1/D)
     Route: 058
     Dates: start: 20080131, end: 20080312
  2. SUPEUDOL [Concomitant]
  3. OXYCONTIN [Concomitant]
  4. CALCIUM [Concomitant]
  5. VITAMIN D [Concomitant]
  6. TYLENOL EXTRA-STRENGTH [Concomitant]
     Dosage: UNK, AS NEEDED

REACTIONS (2)
  - ASTHMA [None]
  - DYSPNOEA [None]
